FAERS Safety Report 7675364-6 (Version None)
Quarter: 2011Q3

REPORT INFORMATION
  Report Type: 
  Country: None (occurrence: None)
  Receive Date: 20110810
  Receipt Date: 20110802
  Transmission Date: 20111222
  Serious: Yes (Disabling)
  Sender: FDA-Public Use
  Company Number: GB-PFIZER INC-2011175632

PATIENT
  Age: 29 Year
  Sex: Male
  Weight: 97 kg

DRUGS (3)
  1. RIZATRIPTAN [Concomitant]
     Indication: PRODUCT USED FOR UNKNOWN INDICATION
     Dosage: UNK
     Dates: start: 20110715
  2. SUMATRIPTAN SUCCINATE [Suspect]
     Indication: PRODUCT USED FOR UNKNOWN INDICATION
     Dosage: UNK
     Dates: start: 20110715
  3. TERBINAFINE [Concomitant]
     Indication: PRODUCT USED FOR UNKNOWN INDICATION
     Dosage: UNK
     Dates: start: 20110118, end: 20110510

REACTIONS (4)
  - PARAESTHESIA [None]
  - FLUSHING [None]
  - HYPERHIDROSIS [None]
  - MALAISE [None]
